FAERS Safety Report 12899084 (Version 2)
Quarter: 2016Q4

REPORT INFORMATION
  Report Type: Spontaneous
  Country: JP (occurrence: JP)
  Receive Date: 20161101
  Receipt Date: 20161212
  Transmission Date: 20170207
  Serious: Yes (Other)
  Sender: FDA-Public Use
  Company Number: JP-HQ SPECIALTY-JP-2016INT000924

PATIENT
  Age: 50 Year
  Sex: Female

DRUGS (2)
  1. IRINOTECAN [Suspect]
     Active Substance: IRINOTECAN
     Indication: MALIGNANT ASCITES
     Dosage: 80 MG/BODY
     Dates: start: 200905
  2. CISPLATIN. [Suspect]
     Active Substance: CISPLATIN
     Indication: MALIGNANT ASCITES
     Dosage: 80 MG/ BODY BIWEEKLY
     Dates: start: 200905

REACTIONS (2)
  - Diarrhoea [Unknown]
  - Decreased appetite [Unknown]
